FAERS Safety Report 8032778-2 (Version None)
Quarter: 2011Q4

REPORT INFORMATION
  Report Type: 
  Country: None (occurrence: None)
  Receive Date: 20111223
  Receipt Date: 20111213
  Transmission Date: 20120403
  Serious: Yes (Hospitalization)
  Sender: FDA-Public Use
  Company Number: DSA_48565_2011

PATIENT
  Age: 60 Year
  Sex: Female

DRUGS (5)
  1. OLANZAPINE [Concomitant]
  2. CITALOPRAM [Concomitant]
  3. BUPROPION HYDROCHLORIDE [Suspect]
     Indication: DEPRESSION
     Dosage: 150 MG, DAILY, ORAL
     Route: 048
  4. BUPROPION HYDROCHLORIDE [Suspect]
     Indication: PSYCHOTIC DISORDER
     Dosage: 150 MG, DAILY, ORAL
     Route: 048
  5. BUPROPION HYDROCHLORIDE [Suspect]
     Indication: THINKING ABNORMAL
     Dosage: 150 MG, DAILY, ORAL
     Route: 048

REACTIONS (3)
  - STATUS EPILEPTICUS [None]
  - EPILEPSY [None]
  - EUPHORIC MOOD [None]
